FAERS Safety Report 9675733 (Version 1)
Quarter: 2013Q4

REPORT INFORMATION
  Report Type: Report from Study
  Country: US (occurrence: US)
  Receive Date: 20131107
  Receipt Date: 20131107
  Transmission Date: 20140711
  Serious: Yes (Other)
  Sender: FDA-Public Use
  Company Number: US-GILEAD-2013-0086890

PATIENT
  Age: 26 Year
  Sex: Female

DRUGS (3)
  1. EMTRICITABINE/TENOFOVIR DISOPROXIL FUMARATE [Suspect]
     Indication: ANTIRETROVIRAL THERAPY
     Dosage: 1 DF, QD
     Route: 048
  2. NORVIR [Suspect]
     Indication: ANTIRETROVIRAL THERAPY
     Dosage: 100 MG, QD
     Route: 048
  3. REYATAZ [Suspect]
     Indication: ANTIRETROVIRAL THERAPY
     Dosage: 300 MG, QD
     Route: 048

REACTIONS (2)
  - Ruptured ectopic pregnancy [Recovered/Resolved]
  - Abortion spontaneous [Recovered/Resolved]
